FAERS Safety Report 9297984 (Version 1)
Quarter: 2013Q2

REPORT INFORMATION
  Report Type: Spontaneous
  Country: US (occurrence: US)
  Receive Date: 20130520
  Receipt Date: 20130520
  Transmission Date: 20140414
  Serious: Yes (Other)
  Sender: FDA-Public Use
  Company Number: US-PFIZER INC-2013152009

PATIENT
  Sex: Female

DRUGS (1)
  1. LYRICA [Suspect]
     Dosage: UNK
     Dates: start: 2006

REACTIONS (5)
  - Road traffic accident [Unknown]
  - Hypertension [Unknown]
  - Feeling abnormal [Unknown]
  - Weight increased [Unknown]
  - Musculoskeletal pain [Unknown]
